FAERS Safety Report 20925185 (Version 2)
Quarter: 2023Q1

REPORT INFORMATION
  Report Type: Spontaneous
  Country: US (occurrence: US)
  Receive Date: 20220607
  Receipt Date: 20230330
  Transmission Date: 20230417
  Serious: Yes (Other)
  Sender: FDA-Public Use
  Company Number: US-PFIZER INC-202200800208

PATIENT
  Age: 62 Year
  Sex: Female

DRUGS (1)
  1. XELJANZ XR [Suspect]
     Active Substance: TOFACITINIB CITRATE
     Dosage: UNK
     Dates: start: 20200123

REACTIONS (6)
  - Nephrolithiasis [Unknown]
  - Urinary tract infection [Unknown]
  - Sinusitis [Unknown]
  - Joint stiffness [Unknown]
  - Influenza [Unknown]
  - Viral infection [Unknown]
